FAERS Safety Report 6729384-6 (Version None)
Quarter: 2010Q2

REPORT INFORMATION
  Report Type: 
  Country: None (occurrence: None)
  Receive Date: 20100518
  Receipt Date: 20100514
  Transmission Date: 20101027
  Serious: Yes (Hospitalization, Other)
  Sender: FDA-Public Use
  Company Number: US-ASTRAZENECA-2009SE32604

PATIENT
  Age: 32 Year
  Sex: Female
  Weight: 81.6 kg

DRUGS (4)
  1. SEROQUEL [Suspect]
     Indication: POST-TRAUMATIC STRESS DISORDER
     Route: 048
     Dates: start: 20021201, end: 20080101
  2. SEROQUEL [Suspect]
     Indication: DISSOCIATIVE IDENTITY DISORDER
     Route: 048
     Dates: start: 20021201, end: 20080101
  3. SEROQUEL [Suspect]
     Indication: DEPRESSION
     Route: 048
     Dates: start: 20021201, end: 20080101
  4. RISPERDAL [Concomitant]

REACTIONS (5)
  - GALLBLADDER DISORDER [None]
  - INJURY [None]
  - PANCREATITIS [None]
  - ROAD TRAFFIC ACCIDENT [None]
  - ULCER [None]
